FAERS Safety Report 11891048 (Version 3)
Quarter: 2016Q1

REPORT INFORMATION
  Report Type: Spontaneous
  Country: US (occurrence: US)
  Receive Date: 20160106
  Receipt Date: 20160120
  Transmission Date: 20160526
  Serious: Yes (Death)
  Sender: FDA-Public Use
  Company Number: US-ROCHE-1688863

PATIENT
  Sex: Male
  Weight: 96.25 kg

DRUGS (6)
  1. OXYGEN. [Concomitant]
     Active Substance: OXYGEN
  2. BACLOFEN. [Concomitant]
     Active Substance: BACLOFEN
     Indication: IDIOPATHIC PULMONARY FIBROSIS
     Route: 048
  3. ESBRIET [Suspect]
     Active Substance: PIRFENIDONE
     Route: 065
     Dates: start: 201410
  4. ESBRIET [Suspect]
     Active Substance: PIRFENIDONE
     Indication: IDIOPATHIC PULMONARY FIBROSIS
     Dosage: 267 MG CAPSULES THRICE A DAY
     Route: 048
  5. ESBRIET [Suspect]
     Active Substance: PIRFENIDONE
     Route: 048
     Dates: start: 20150421
  6. PREDNISONE. [Concomitant]
     Active Substance: PREDNISONE
     Indication: IDIOPATHIC PULMONARY FIBROSIS
     Route: 048

REACTIONS (1)
  - Influenza [Fatal]
